FAERS Safety Report 4963400-7 (Version None)
Quarter: 2006Q1

REPORT INFORMATION
  Report Type: 
  Country: None (occurrence: None)
  Receive Date: 20060329
  Receipt Date: 20060321
  Transmission Date: 20060701
  Serious: No
  Sender: FDA-Public Use
  Company Number: S06-USA-01167-02

PATIENT
  Age: 25 Year
  Sex: Female

DRUGS (2)
  1. CERVIDIL [Suspect]
     Indication: LABOUR INDUCTION
     Dates: start: 20060315, end: 20060315
  2. VITAMIN AND MINERAL PRENATAL SUPPLEMENT W/ FOLIC ACID CAP [Concomitant]

REACTIONS (7)
  - CAESAREAN SECTION [None]
  - DRUG EXPOSURE DURING PREGNANCY [None]
  - FOETAL DISORDER [None]
  - FOREIGN BODY TRAUMA [None]
  - IRRITABILITY [None]
  - MEDICAL DEVICE COMPLICATION [None]
  - UTERINE HYPERTONUS [None]
